FAERS Safety Report 6733825-8 (Version None)
Quarter: 2010Q2

REPORT INFORMATION
  Report Type: 
  Country: None (occurrence: None)
  Receive Date: 20100520
  Receipt Date: 20100510
  Transmission Date: 20101027
  Serious: No
  Sender: FDA-Public Use
  Company Number: US-JNJFOC-20100403130

PATIENT
  Sex: Male
  Weight: 113.4 kg

DRUGS (8)
  1. FENTANYL CITRATE [Suspect]
     Indication: PAIN
     Route: 062
  2. SANDOZ FENTANYL RESERVOIR TRANSDERMAL SYSTEM [Suspect]
     Indication: PAIN
     Route: 062
  3. PERCOCET [Concomitant]
     Indication: BREAKTHROUGH PAIN
     Dosage: 2-4 TABLETS PER DAY
     Route: 048
  4. ALPRAZOLAM [Concomitant]
     Indication: DEPRESSION
     Route: 048
  5. SERTRALINE HCL [Concomitant]
     Indication: DEPRESSION
     Route: 048
  6. CARDIZEM [Concomitant]
     Indication: HYPERTENSION
     Route: 048
  7. AMITRIPTLINE HYDROCHLORIDE TAB [Concomitant]
     Indication: SLEEP DISORDER
     Route: 048
  8. CRESTOR [Concomitant]
     Indication: BLOOD CHOLESTEROL INCREASED
     Route: 048

REACTIONS (4)
  - BLOOD CHOLESTEROL INCREASED [None]
  - PRODUCT ADHESION ISSUE [None]
  - PRODUCT QUALITY ISSUE [None]
  - WRONG TECHNIQUE IN DRUG USAGE PROCESS [None]
